FAERS Safety Report 6667636-9 (Version None)
Quarter: 2010Q2

REPORT INFORMATION
  Report Type: 
  Country: None (occurrence: None)
  Receive Date: 20100405
  Receipt Date: 20100329
  Transmission Date: 20101027
  Serious: Yes (Other)
  Sender: FDA-Public Use
  Company Number: A0852397A

PATIENT
  Age: 85 Year
  Sex: Male

DRUGS (11)
  1. LOVAZA [Suspect]
     Indication: BLOOD TRIGLYCERIDES INCREASED
     Dosage: 4CAP PER DAY
     Route: 048
     Dates: start: 20090901
  2. CENTRUM SILVER [Concomitant]
  3. ASPIRIN [Concomitant]
  4. CARVEDILOL [Concomitant]
  5. AMIODARONE HCL [Concomitant]
  6. SPIRONOLACTONE [Concomitant]
  7. ENALAPRIL MALEATE [Concomitant]
  8. VITAMIN B-12 [Concomitant]
  9. AVODART [Concomitant]
  10. FLOMAX [Concomitant]
  11. ZOCOR [Concomitant]

REACTIONS (4)
  - ATROPHY [None]
  - MUSCLE TIGHTNESS [None]
  - MUSCULOSKELETAL STIFFNESS [None]
  - MYALGIA [None]
